FAERS Safety Report 20943160 (Version 1)
Quarter: 2022Q2

REPORT INFORMATION
  Report Type: Spontaneous
  Country: US (occurrence: None)
  Receive Date: 20220608
  Receipt Date: 20220608
  Transmission Date: 20220720
  Serious: Yes (Life-Threatening)
  Sender: FDA-Public Use
  Company Number: None

PATIENT
  Age: 52 Year
  Sex: Male
  Weight: 84.82 kg

DRUGS (1)
  1. ALBUTEROL [Suspect]
     Active Substance: ALBUTEROL
     Indication: Post-acute COVID-19 syndrome
     Dates: start: 20220602, end: 20220607

REACTIONS (2)
  - Dyspnoea [None]
  - Dyspnoea [None]

NARRATIVE: CASE EVENT DATE: 20220607
